FAERS Safety Report 9159616 (Version 2)
Quarter: 2013Q2

REPORT INFORMATION
  Report Type: Spontaneous
  Country: BR (occurrence: BR)
  Receive Date: 20130313
  Receipt Date: 20130422
  Transmission Date: 20140414
  Serious: Yes (Other)
  Sender: FDA-Public Use
  Company Number: BR-AMGEN-BRASP2013017601

PATIENT
  Age: 31 Year
  Sex: Female

DRUGS (2)
  1. ENBREL [Suspect]
     Indication: PRODUCT USED FOR UNKNOWN INDICATION
     Dosage: 25 MG, QWK
  2. ENBREL [Suspect]
     Dosage: UNK, WEEKLY

REACTIONS (6)
  - Rheumatoid arthritis [Unknown]
  - Expired drug administered [Unknown]
  - Product expiration date issue [Unknown]
  - Malaise [Not Recovered/Not Resolved]
  - Oedema peripheral [Unknown]
  - Neck pain [Unknown]
